FAERS Safety Report 20738108 (Version 1)
Quarter: 2022Q2

REPORT INFORMATION
  Report Type: Spontaneous
  Country: FR (occurrence: FR)
  Receive Date: 20220422
  Receipt Date: 20220422
  Transmission Date: 20220720
  Serious: Yes (Hospitalization)
  Sender: FDA-Public Use
  Company Number: None

PATIENT
  Age: 46 Year
  Sex: Female
  Weight: 142.6 kg

DRUGS (10)
  1. SPIRONOLACTONE [Suspect]
     Active Substance: SPIRONOLACTONE
     Indication: Diabetes mellitus
     Dosage: UNIT DOSE: 25 MG, FREQUENCY TIME : 1 DAY, DURATION : 5 DAYS
     Dates: start: 20220311, end: 20220316
  2. KETOPROFEN [Suspect]
     Active Substance: KETOPROFEN
     Dosage: UNIT DOSE: 100 MG, DURATION : 1 DAY
     Route: 042
     Dates: start: 20220310, end: 20220311
  3. OXYCODONE HYDROCHLORIDE [Suspect]
     Active Substance: OXYCODONE HYDROCHLORIDE
     Indication: Pain
     Dosage: UNIT DOSE: 10 MG, FREQUENCY TIME : 1 DAY, DURATION : 4 DAYS
     Dates: start: 20220313, end: 20220317
  4. DAPAGLIFLOZIN [Suspect]
     Active Substance: DAPAGLIFLOZIN
     Indication: Diabetes mellitus
     Dosage: UNIT DOSE: 10 MG, STRENGTH: 10 MG, FREQUENCY TIME : 1 DAY, DURATION :12 DAYS
     Dates: start: 20220305, end: 20220317
  5. DAPAGLIFLOZIN [Suspect]
     Active Substance: DAPAGLIFLOZIN
     Indication: Diabetes mellitus
     Dosage: UNIT DOSE: 10 MG, STRENGTH: 10 MG, FREQUENCY TIME : 1 DAY, DURATION: 12 DAYS
     Dates: start: 20220305, end: 20220317
  6. ENTRESTO [Suspect]
     Active Substance: SACUBITRIL\VALSARTAN
     Dosage: 2/D, STRENGTH: 24 MG/26 MG, FREQUENCY TIME : 1 DAY, DURATION : 6 DAYS
     Route: 048
     Dates: start: 20220202, end: 20220316
  7. PANTOPRAZOLE [Concomitant]
     Active Substance: PANTOPRAZOLE
     Dosage: UNIT DOSE: 40 MG, FREQUENCY TIME: 1 DAY
     Route: 048
  8. CORDARONE [Concomitant]
     Active Substance: AMIODARONE HYDROCHLORIDE
     Dosage: SCORED TABLET, UNIT DOSE: 200 MG, FREQUENCY TIME : 1 DAY, STRENGTH: 200 MG
     Route: 048
     Dates: start: 20220228
  9. INNOHEP [Concomitant]
     Active Substance: TINZAPARIN SODIUM
     Dosage: INNOHEP 18,000 ANTI-XA IU/0.9 ML, UNIT DOSE: 18000 IU, FREQUENCY TIME : 1 DAY, DURATION :10 DAYS
     Route: 058
     Dates: start: 20220311, end: 20220321
  10. BISOPROLOL FUMARATE [Concomitant]
     Active Substance: BISOPROLOL FUMARATE
     Dosage: BISOPROLOL (FUMARATE ACIDE DE), UNIT DOSE: 10 MG, FREQUENCY TIME : 1 DAY
     Route: 048
     Dates: start: 20220218

REACTIONS (1)
  - Acute generalised exanthematous pustulosis [Recovering/Resolving]

NARRATIVE: CASE EVENT DATE: 20220316
